FAERS Safety Report 24970427 (Version 2)
Quarter: 2025Q2

REPORT INFORMATION
  Report Type: Spontaneous
  Country: CO (occurrence: CO)
  Receive Date: 20250214
  Receipt Date: 20250515
  Transmission Date: 20250716
  Serious: Yes (Other)
  Sender: REGENERON
  Company Number: CO-BAYER-2025A020417

PATIENT
  Sex: Female

DRUGS (1)
  1. EYLEA [Suspect]
     Active Substance: AFLIBERCEPT
     Indication: Retinal vein occlusion
     Route: 031
     Dates: start: 20240628, end: 20240628

REACTIONS (10)
  - Retinal haemorrhage [Unknown]
  - Vitreous haemorrhage [Unknown]
  - Vitreous degeneration [Unknown]
  - Endophthalmitis [Unknown]
  - Eye inflammation [Unknown]
  - Iridocyclitis [Unknown]
  - Vitritis [Unknown]
  - Visual acuity reduced [Unknown]
  - Vitreous floaters [Unknown]
  - Vision blurred [Unknown]

NARRATIVE: CASE EVENT DATE: 20240601
